FAERS Safety Report 6012925-4 (Version None)
Quarter: 2008Q4

REPORT INFORMATION
  Report Type: 
  Country: None (occurrence: None)
  Receive Date: 20081219
  Receipt Date: 20081211
  Transmission Date: 20090506
  Serious: Yes (Death, Hospitalization)
  Sender: FDA-Public Use
  Company Number: FR-BRISTOL-MYERS SQUIBB COMPANY-14445365

PATIENT
  Age: 62 Year
  Sex: Female

DRUGS (2)
  1. ERBITUX [Suspect]
     Indication: LARYNGEAL CANCER
     Dosage: 1ST COURSE:  28AUG08 2ND COURSE: 04SEP08(D8)  3RD COURSE:  11SEP08(D15) 2ND CYCLE: 25SEP08
     Route: 042
     Dates: start: 20080828, end: 20081002
  2. RADIATION THERAPY [Concomitant]

REACTIONS (2)
  - SEPTIC SHOCK [None]
  - SKIN REACTION [None]
